FAERS Safety Report 21071540 (Version 1)
Quarter: 2022Q3

REPORT INFORMATION
  Report Type: Spontaneous
  Country: NL (occurrence: NL)
  Receive Date: 20220712
  Receipt Date: 20220712
  Transmission Date: 20221027
  Serious: Yes (Other)
  Sender: FDA-Public Use
  Company Number: NL-009507513-2207NLD002257

PATIENT
  Age: 81 Year
  Sex: Female

DRUGS (3)
  1. PEMBROLIZUMAB [Suspect]
     Active Substance: PEMBROLIZUMAB
     Indication: Non-small cell lung cancer
     Dosage: UNK, CYCLICAL
     Dates: start: 20181015
  2. PEMBROLIZUMAB [Suspect]
     Active Substance: PEMBROLIZUMAB
     Dosage: UNK, CYCLICAL
     Dates: start: 20190107
  3. PEMBROLIZUMAB [Suspect]
     Active Substance: PEMBROLIZUMAB
     Dosage: UNK, CYCLICAL
     Dates: start: 20190916

REACTIONS (3)
  - Rheumatoid arthritis [Unknown]
  - Immune-mediated thyroiditis [Unknown]
  - Immune-mediated dermatitis [Unknown]

NARRATIVE: CASE EVENT DATE: 20180101
